FAERS Safety Report 17998492 (Version 1)
Quarter: 2020Q3

REPORT INFORMATION
  Report Type: Spontaneous
  Country: GB (occurrence: GB)
  Receive Date: 20200709
  Receipt Date: 20200709
  Transmission Date: 20201103
  Serious: Yes (Life-Threatening)
  Sender: FDA-Public Use
  Company Number: GB-TEVA-2020-GB-1797125

PATIENT
  Age: 85 Year
  Sex: Male

DRUGS (7)
  1. IVABRADINE [Concomitant]
     Active Substance: IVABRADINE
  2. DIGOXIN. [Concomitant]
     Active Substance: DIGOXIN
  3. RAMIPRIL. [Concomitant]
     Active Substance: RAMIPRIL
  4. ALLOPURINOL. [Concomitant]
     Active Substance: ALLOPURINOL
  5. ISOSORBIDE MONONITRATE. [Concomitant]
     Active Substance: ISOSORBIDE MONONITRATE
  6. ATORVASTATIN [Concomitant]
     Active Substance: ATORVASTATIN
  7. CLOPIDOGREL [Suspect]
     Active Substance: CLOPIDOGREL BISULFATE
     Indication: CEREBROVASCULAR ACCIDENT PROPHYLAXIS
     Dosage: 75 MILLIGRAM
     Route: 048

REACTIONS (1)
  - Cerebrovascular accident [Recovered/Resolved with Sequelae]
